FAERS Safety Report 7956948-4 (Version None)
Quarter: 2011Q4

REPORT INFORMATION
  Report Type: 
  Country: None (occurrence: None)
  Receive Date: 20111205
  Receipt Date: 20111205
  Transmission Date: 20120403
  Serious: Yes (Disabling)
  Sender: FDA-Public Use
  Company Number: None

PATIENT
  Age: 6 Day
  Sex: Female
  Weight: 81.646 kg

DRUGS (1)
  1. EQUATE ALLERGY RELIEF CAPSULES [Suspect]
     Indication: MULTIPLE ALLERGIES
     Dosage: TAKE 1 OR 2  PILLS
     Route: 048
     Dates: start: 20111111, end: 20111128

REACTIONS (4)
  - NAUSEA [None]
  - ABDOMINAL PAIN UPPER [None]
  - MALAISE [None]
  - PRODUCT QUALITY ISSUE [None]
